FAERS Safety Report 4964378-2 (Version None)
Quarter: 2006Q2

REPORT INFORMATION
  Report Type: 
  Country: None (occurrence: None)
  Receive Date: 20060406
  Receipt Date: 20060309
  Transmission Date: 20061013
  Serious: Yes (Other)
  Sender: FDA-Public Use
  Company Number: PHBS2006JP03877

PATIENT
  Age: 39 Year
  Sex: Male

DRUGS (5)
  1. ALEVIATIN [Concomitant]
     Indication: EPILEPSY
     Route: 048
  2. PRIMIDONE [Concomitant]
     Indication: EPILEPSY
     Route: 048
  3. DEPAKENE [Concomitant]
     Indication: EPILEPSY
     Route: 048
  4. LIORESAL [Suspect]
     Indication: MUSCULOSKELETAL STIFFNESS
     Dosage: 5 MG, QD
     Route: 048
     Dates: start: 20060124, end: 20060302
  5. LIORESAL [Suspect]
     Dosage: 5 MG, TID
     Route: 048
     Dates: start: 20060303, end: 20060309

REACTIONS (6)
  - C-REACTIVE PROTEIN INCREASED [None]
  - DECREASED ACTIVITY [None]
  - HYPOTHERMIA [None]
  - PLATELET COUNT DECREASED [None]
  - URINARY TRACT INFECTION [None]
  - WHITE BLOOD CELL COUNT INCREASED [None]
